FAERS Safety Report 23904613 (Version 3)
Quarter: 2024Q4

REPORT INFORMATION
  Report Type: Spontaneous
  Country: CA (occurrence: CA)
  Receive Date: 20240527
  Receipt Date: 20241126
  Transmission Date: 20250115
  Serious: No
  Sender: PFIZER
  Company Number: CA-PFIZER INC-PV202400066491

PATIENT
  Age: 9 Year
  Sex: Male
  Weight: 31.7 kg

DRUGS (3)
  1. NGENLA [Suspect]
     Active Substance: SOMATROGON-GHLA
     Indication: Growth hormone deficiency
     Dosage: WEEKLY
     Route: 058
     Dates: start: 2022
  2. CORTEF [Concomitant]
     Active Substance: HYDROCORTISONE
     Dosage: WITHIN?2?WEEKS?PRIOR?TO?THE?EVENT?ONSET
  3. SYNTHROID [Concomitant]
     Active Substance: LEVOTHYROXINE SODIUM
     Dosage: WITHIN 2 WEEKS PRIOR TO THE EVENT ONSET

REACTIONS (2)
  - Injection site pain [Not Recovered/Not Resolved]
  - Dysgeusia [Not Recovered/Not Resolved]

NARRATIVE: CASE EVENT DATE: 20230101
